FAERS Safety Report 6200129-1 (Version None)
Quarter: 2009Q2

REPORT INFORMATION
  Report Type: 
  Country: None (occurrence: None)
  Receive Date: 20090522
  Receipt Date: 20090518
  Transmission Date: 20091009
  Serious: Yes (Hospitalization)
  Sender: FDA-Public Use
  Company Number: PHHY2009JP19306

PATIENT
  Age: 9 Year
  Sex: Male

DRUGS (1)
  1. TEGRETOL [Suspect]
     Indication: PARTIAL SEIZURES
     Dosage: 100 MG
     Route: 048

REACTIONS (3)
  - HISTIOCYTOSIS HAEMATOPHAGIC [None]
  - PLATELET COUNT DECREASED [None]
  - PYREXIA [None]
